FAERS Safety Report 20156342 (Version 4)
Quarter: 2022Q2

REPORT INFORMATION
  Report Type: Spontaneous
  Country: IN (occurrence: IN)
  Receive Date: 20211207
  Receipt Date: 20220609
  Transmission Date: 20220720
  Serious: Yes (Other)
  Sender: FDA-Public Use
  Company Number: IN-PFIZER INC-2020371253

PATIENT
  Age: 27 Year
  Sex: Male

DRUGS (6)
  1. CRIZOTINIB [Suspect]
     Active Substance: CRIZOTINIB
     Indication: Lung neoplasm malignant
     Dosage: 250 MG, 2X/DAY
     Route: 048
     Dates: start: 20200822
  2. CRIZOTINIB [Suspect]
     Active Substance: CRIZOTINIB
     Dosage: 250 MG, 2X/DAY
     Route: 048
     Dates: start: 202105
  3. DOMPERIDONE\PANTOPRAZOLE SODIUM [Concomitant]
     Active Substance: DOMPERIDONE\PANTOPRAZOLE SODIUM
     Dosage: 1 DF, 1X/DAY
  4. ONDEM [Concomitant]
     Dosage: 4 MG
     Route: 048
  5. BECOSULES [ASCORBIC ACID;BIOTIN;CALCIUM PANTOTHENATE;CYANOCOBALAMIN;FO [Concomitant]
     Dosage: 1 DF, 1X/DAY
  6. COREX [Concomitant]
     Dosage: UNK
     Route: 048

REACTIONS (8)
  - Benign lung neoplasm [Unknown]
  - Breath sounds abnormal [Recovered/Resolved]
  - Weight increased [Unknown]
  - Neoplasm progression [Unknown]
  - Diarrhoea [Unknown]
  - Vision blurred [Unknown]
  - Ageusia [Unknown]
  - Asthenia [Unknown]

NARRATIVE: CASE EVENT DATE: 20200101
